FAERS Safety Report 21679439 (Version 1)
Quarter: 2022Q4

REPORT INFORMATION
  Report Type: Other
  Country: BE (occurrence: BE)
  Receive Date: 20221205
  Receipt Date: 20221205
  Transmission Date: 20230113
  Serious: Yes (Hospitalization, Other)
  Sender: FDA-Public Use
  Company Number: None

PATIENT
  Age: 75 Year
  Sex: Male

DRUGS (3)
  1. ELIGARD [Suspect]
     Active Substance: LEUPROLIDE ACETATE
     Indication: Prostatic specific antigen increased
     Dosage: 45 MILLIGRAM
     Dates: start: 20201222
  2. VENLAFAXINE HYDROCHLORIDE [Concomitant]
     Active Substance: VENLAFAXINE HYDROCHLORIDE
     Indication: Product used for unknown indication
     Dosage: UNK
  3. RADIATION THERAPY [Concomitant]
     Active Substance: RADIATION THERAPY
     Indication: Prostatic specific antigen increased
     Dosage: UNK
     Dates: start: 2020

REACTIONS (6)
  - Gout [Unknown]
  - Pulmonary embolism [Unknown]
  - Thrombosis [Unknown]
  - Pneumonia [Unknown]
  - Dyspnoea exertional [Unknown]
  - Depression [Unknown]

NARRATIVE: CASE EVENT DATE: 20210101
